FAERS Safety Report 23468066 (Version 2)
Quarter: 2024Q1

REPORT INFORMATION
  Report Type: Spontaneous
  Country: US (occurrence: US)
  Receive Date: 20240201
  Receipt Date: 20240211
  Transmission Date: 20240410
  Serious: No
  Sender: FDA-Public Use
  Company Number: US-AMGEN-USASP2024019849

PATIENT
  Age: 66 Year
  Sex: Male

DRUGS (2)
  1. NPLATE [Suspect]
     Active Substance: ROMIPLOSTIM
     Indication: Epstein-Barr viraemia
     Dosage: 750 MICROGRAM (500 MCG+ 250 MCG)
     Route: 065
  2. NPLATE [Suspect]
     Active Substance: ROMIPLOSTIM
     Indication: Haemophagocytic lymphohistiocytosis
     Dosage: 750 MICROGRAM (500 MCG+ 250 MCG)
     Route: 065

REACTIONS (1)
  - Product preparation error [Unknown]

NARRATIVE: CASE EVENT DATE: 20240112
